FAERS Safety Report 18263544 (Version 1)
Quarter: 2020Q3

REPORT INFORMATION
  Report Type: Spontaneous
  Country: BR (occurrence: BR)
  Receive Date: 20200914
  Receipt Date: 20200914
  Transmission Date: 20201103
  Serious: Yes (Other)
  Sender: FDA-Public Use
  Company Number: NVSC2020BR250212

PATIENT
  Age: 57 Year
  Sex: Female

DRUGS (3)
  1. DIOVAN AMLO FIX [Suspect]
     Active Substance: AMLODIPINE\VALSARTAN
     Indication: PRODUCT USED FOR UNKNOWN INDICATION
     Dosage: 160 MG/5 MG
     Route: 065
     Dates: start: 202001, end: 202008
  2. DIOVAN AMLO FIX [Suspect]
     Active Substance: AMLODIPINE\VALSARTAN
     Dosage: 320 MG (USE FOR APPROXIMATELY 15 DAYS)
     Route: 065
     Dates: start: 202007
  3. DIOVAN AMLO FIX [Suspect]
     Active Substance: AMLODIPINE\VALSARTAN
     Dosage: 80 MG/5 MG
     Route: 065
     Dates: start: 202008

REACTIONS (5)
  - Anxiety [Not Recovered/Not Resolved]
  - Blood pressure increased [Unknown]
  - Wrong technique in product usage process [Unknown]
  - COVID-19 [Recovered/Resolved]
  - Blood pressure decreased [Not Recovered/Not Resolved]

NARRATIVE: CASE EVENT DATE: 202005
